FAERS Safety Report 25665101 (Version 1)
Quarter: 2025Q3

REPORT INFORMATION
  Report Type: Spontaneous
  Country: GB (occurrence: GB)
  Receive Date: 20250811
  Receipt Date: 20250811
  Transmission Date: 20251021
  Serious: Yes (Other)
  Sender: TEVA
  Company Number: GB-MHRA-TPP35577882C7829200YC1754312407320

PATIENT
  Age: 80 Year
  Sex: Female
  Weight: 55 kg

DRUGS (19)
  1. DOXYCYCLINE [Suspect]
     Active Substance: DOXYCYCLINE
     Indication: Product used for unknown indication
     Route: 065
     Dates: start: 20250723
  2. LOSARTAN [Concomitant]
     Active Substance: LOSARTAN
     Indication: Ill-defined disorder
     Dates: start: 20240529
  3. FUROSEMIDE [Concomitant]
     Active Substance: FUROSEMIDE
     Indication: Ill-defined disorder
     Dosage: MORNING TO OFFLOAD FLUID
     Dates: start: 20250220
  4. FAMOTIDINE [Concomitant]
     Active Substance: FAMOTIDINE
     Indication: Ill-defined disorder
     Dosage: AT NIGHT
     Dates: start: 20250103
  5. IPRATROPIUM BROMIDE [Concomitant]
     Active Substance: IPRATROPIUM BROMIDE
     Indication: Ill-defined disorder
     Dates: start: 20250630, end: 20250730
  6. BUDESONIDE\FORMOTEROL\GLYCOPYRRONIUM [Concomitant]
     Active Substance: BUDESONIDE\FORMOTEROL\GLYCOPYRRONIUM
     Indication: Ill-defined disorder
     Dosage: INHALE VIA SPACER
     Dates: start: 20250506, end: 20250703
  7. BECLOMETHASONE\FORMOTEROL [Concomitant]
     Active Substance: BECLOMETHASONE\FORMOTEROL
     Indication: Ill-defined disorder
     Dosage: INHALE
     Dates: start: 20230922
  8. DILTIAZEM HYDROCHLORIDE [Concomitant]
     Active Substance: DILTIAZEM HYDROCHLORIDE
     Indication: Ill-defined disorder
     Dates: start: 20250104
  9. AZITHROMYCIN [Concomitant]
     Active Substance: AZITHROMYCIN
     Indication: Ill-defined disorder
     Dates: start: 20250103
  10. LACTULOSE [Concomitant]
     Active Substance: LACTULOSE
     Indication: Constipation
     Dates: start: 20250604, end: 20250620
  11. VENTOLIN [Concomitant]
     Active Substance: ALBUTEROL SULFATE
     Indication: Ill-defined disorder
     Dates: start: 20231013
  12. ALBUTEROL [Concomitant]
     Active Substance: ALBUTEROL
     Indication: Ill-defined disorder
     Dates: start: 20250104
  13. AMOXICILLIN\CLAVULANIC ACID [Concomitant]
     Active Substance: AMOXICILLIN\CLAVULANIC ACID
     Indication: Ill-defined disorder
     Dates: start: 20250729
  14. TIOTROPIUM BROMIDE [Concomitant]
     Active Substance: TIOTROPIUM BROMIDE
     Indication: Ill-defined disorder
     Dates: start: 20220818, end: 20250730
  15. ALLEVYN GENTLE BORDER [Concomitant]
     Indication: Ill-defined disorder
     Dates: start: 20250610, end: 20250615
  16. APIXABAN [Concomitant]
     Active Substance: APIXABAN
     Indication: Ill-defined disorder
     Dates: start: 20230630
  17. MOMETASONE [Concomitant]
     Active Substance: MOMETASONE
     Indication: Sinusitis
     Dosage: SPRAYS INTO EACH NOSTRIL FOR 14 DAYS
     Dates: start: 20250725
  18. INADINE [Concomitant]
     Indication: Ill-defined disorder
     Dates: start: 20250610, end: 20250611
  19. PREDNISOLONE [Concomitant]
     Active Substance: PREDNISOLONE
     Indication: Chronic obstructive pulmonary disease
     Dosage: EVERY MORNING FOR 5 DAYS
     Dates: start: 20250729, end: 20250803

REACTIONS (1)
  - Vomiting projectile [Recovered/Resolved]
